FAERS Safety Report 10518462 (Version 1)
Quarter: 2014Q4

REPORT INFORMATION
  Report Type: Spontaneous
  Country: US (occurrence: None)
  Receive Date: 20141014
  Receipt Date: 20141014
  Transmission Date: 20150528
  Serious: Yes (Life-Threatening, Hospitalization)
  Sender: FDA-Public Use
  Company Number: None

PATIENT
  Age: 68 Year
  Sex: Male
  Weight: 67.7 kg

DRUGS (1)
  1. PACLITAXEL. [Suspect]
     Active Substance: PACLITAXEL
     Indication: LUNG ADENOCARCINOMA
     Route: 042
     Dates: start: 20140806, end: 20140806

REACTIONS (4)
  - Anaphylactic reaction [None]
  - Infusion related reaction [None]
  - Hypotension [None]
  - Angina pectoris [None]

NARRATIVE: CASE EVENT DATE: 20140806
